FAERS Safety Report 6173619-8 (Version None)
Quarter: 2009Q2

REPORT INFORMATION
  Report Type: 
  Country: None (occurrence: None)
  Receive Date: 20090430
  Receipt Date: 20090424
  Transmission Date: 20091009
  Serious: Yes (Hospitalization)
  Sender: FDA-Public Use
  Company Number: US-GENENTECH-279803

PATIENT
  Sex: Female
  Weight: 77.098 kg

DRUGS (4)
  1. BLINDED PLACEBO [Suspect]
     Indication: DERMATOMYOSITIS
     Dosage: 1000 MG, UNK
     Route: 042
     Dates: start: 20090312, end: 20090312
  2. BLINDED RITUXIMAB [Suspect]
     Indication: DERMATOMYOSITIS
     Dosage: 1000 MG, UNK
     Route: 042
     Dates: start: 20090312, end: 20090312
  3. PREDNISONE [Concomitant]
     Indication: DRUG USE FOR UNKNOWN INDICATION
     Dosage: 15 MG, UNK
     Dates: start: 19990101
  4. METHOTREXATE [Concomitant]
     Indication: DRUG USE FOR UNKNOWN INDICATION
     Dosage: 10 MG, UNK
     Dates: start: 20070101

REACTIONS (7)
  - DIZZINESS [None]
  - HAEMATOCRIT DECREASED [None]
  - MOUTH INJURY [None]
  - PLATELET COUNT DECREASED [None]
  - RIB FRACTURE [None]
  - SYNCOPE [None]
  - VERTIGO [None]
